FAERS Safety Report 10195929 (Version 1)
Quarter: 2014Q2

REPORT INFORMATION
  Report Type: Spontaneous
  Country: US (occurrence: US)
  Receive Date: 20140527
  Receipt Date: 20140527
  Transmission Date: 20141212
  Serious: No
  Sender: FDA-Public Use
  Company Number: US-JNJFOC-20140515573

PATIENT
  Age: 58 Year
  Sex: Female
  Weight: 73.48 kg

DRUGS (13)
  1. FENTANYL TRANSDERMAL SYSTEM [Suspect]
     Indication: OSTEOARTHRITIS
     Route: 062
     Dates: start: 20140312
  2. COZAAR [Concomitant]
     Indication: HYPERTENSION
     Route: 048
     Dates: start: 201402
  3. MOBIC [Concomitant]
     Indication: BIPOLAR DISORDER
     Route: 048
     Dates: start: 2012
  4. WELLBUTRIN [Concomitant]
     Indication: BIPOLAR DISORDER
     Route: 048
     Dates: start: 2012
  5. NEURONTIN [Concomitant]
     Indication: BIPOLAR DISORDER
     Route: 048
     Dates: start: 1996
  6. DEPAKOTE ER [Concomitant]
     Indication: BIPOLAR DISORDER
     Dosage: 1000MG/500MG
     Route: 048
     Dates: start: 1996
  7. SYNTHROID [Concomitant]
     Indication: THYROIDECTOMY
     Route: 048
     Dates: start: 1988
  8. PRILOSEC [Concomitant]
     Indication: GASTROOESOPHAGEAL REFLUX DISEASE
     Route: 048
  9. RITALIN [Concomitant]
     Indication: ATTENTION DEFICIT/HYPERACTIVITY DISORDER
     Route: 048
     Dates: start: 2010
  10. KLONOPIN [Concomitant]
     Route: 048
     Dates: start: 1996
  11. BONIVA [Concomitant]
     Indication: OSTEOPOROSIS
     Route: 048
     Dates: start: 2014
  12. CALCIUM [Concomitant]
     Indication: OSTEOPOROSIS
     Route: 048
     Dates: start: 201402
  13. VITAMIN D3 [Concomitant]
     Route: 048
     Dates: start: 201402

REACTIONS (5)
  - Poor quality drug administered [Unknown]
  - Product quality issue [Unknown]
  - Wrong technique in drug usage process [Unknown]
  - Wrong technique in drug usage process [Unknown]
  - Underdose [Unknown]
